FAERS Safety Report 4606530-1 (Version None)
Quarter: 2005Q2

REPORT INFORMATION
  Report Type: 
  Country: None (occurrence: None)
  Receive Date: 20050223
  Receipt Date: 20040920
  Transmission Date: 20051028
  Serious: Yes (Life-Threatening, Hospitalization, Disabling, Other)
  Sender: FDA-Public Use
  Company Number: WAES0409USA01702

PATIENT
  Age: 51 Year
  Sex: Male
  Weight: 84.8226 kg

DRUGS (12)
  1. ZOCOR [Suspect]
     Indication: HYPERLIPIDAEMIA
     Dosage: 80 MG/DAILY/PO
     Route: 048
     Dates: start: 20000101, end: 20040909
  2. NIASPAN [Suspect]
     Indication: HYPERLIPIDAEMIA
     Dosage: 2000 MG/DAILY/PO
     Route: 048
     Dates: start: 20040501, end: 20040909
  3. ALLEGRA [Concomitant]
  4. CELEBREX [Concomitant]
  5. FLONASE [Concomitant]
  6. HYTRIN [Concomitant]
  7. MONOPRIL [Concomitant]
  8. PREVACID [Concomitant]
  9. SINGULAIR [Concomitant]
  10. ZANTAC [Concomitant]
  11. ASPIRIN [Concomitant]
  12. GUAIFENESIN [Concomitant]

REACTIONS (4)
  - DRUG INTERACTION [None]
  - HEPATITIS [None]
  - HYPOCALCAEMIA [None]
  - RHABDOMYOLYSIS [None]
